FAERS Safety Report 7479511-0 (Version None)
Quarter: 2011Q2

REPORT INFORMATION
  Report Type: 
  Country: None (occurrence: None)
  Receive Date: 20110513
  Receipt Date: 20110506
  Transmission Date: 20111010
  Serious: Yes (Hospitalization)
  Sender: FDA-Public Use
  Company Number: FR-US-EMD SERONO, INC.-7057937

PATIENT
  Sex: Female

DRUGS (2)
  1. DECAPEPTYL [Suspect]
     Indication: PRODUCT USED FOR UNKNOWN INDICATION
     Route: 058
     Dates: start: 20101207, end: 20110111
  2. GONAL-F [Suspect]
     Indication: PRODUCT USED FOR UNKNOWN INDICATION
     Route: 058
     Dates: start: 20101222, end: 20110111

REACTIONS (2)
  - THROMBOSIS [None]
  - OVARIAN HYPERSTIMULATION SYNDROME [None]
